FAERS Safety Report 9648127 (Version 9)
Quarter: 2014Q2

REPORT INFORMATION
  Report Type: Report from Study
  Country: CA (occurrence: CA)
  Receive Date: 20131028
  Receipt Date: 20140421
  Transmission Date: 20141212
  Serious: Yes (Other)
  Sender: FDA-Public Use
  Company Number: PHHY2013CA051709

PATIENT
  Age: 73 Year
  Sex: Male

DRUGS (2)
  1. SANDOSTATIN LAR [Suspect]
     Indication: NEUROENDOCRINE TUMOUR
     Dosage: 30 MG, EVERY 4 WEEKS
     Route: 030
     Dates: start: 20130510
  2. SANDOSTATIN [Suspect]
     Indication: NEUROENDOCRINE TUMOUR
     Dosage: 100 UG, TID
     Route: 058
     Dates: start: 20130504, end: 20130506

REACTIONS (9)
  - Malignant melanoma [Unknown]
  - Second primary malignancy [Unknown]
  - Macular degeneration [Not Recovered/Not Resolved]
  - Blood pressure systolic increased [Unknown]
  - Nervousness [Unknown]
  - Gingivitis [Unknown]
  - Tooth loss [Unknown]
  - Stress [Unknown]
  - Eye swelling [Unknown]
